FAERS Safety Report 9668428 (Version 2)
Quarter: 2013Q4

REPORT INFORMATION
  Report Type: Spontaneous
  Country: US (occurrence: US)
  Receive Date: 20131105
  Receipt Date: 20131105
  Transmission Date: 20140711
  Serious: Yes (Other)
  Sender: FDA-Public Use
  Company Number: US-PFIZER INC-2013278654

PATIENT
  Sex: Female

DRUGS (2)
  1. GUAIFENESIN [Suspect]
     Dosage: UNK
  2. ROBITUSSIN [Suspect]
     Dosage: UNK

REACTIONS (6)
  - Drug hypersensitivity [Unknown]
  - Oedema mouth [Unknown]
  - Swollen tongue [Unknown]
  - Pharyngeal oedema [Unknown]
  - Throat irritation [Unknown]
  - Oral pruritus [Unknown]
